FAERS Safety Report 5960948-3 (Version None)
Quarter: 2008Q4

REPORT INFORMATION
  Report Type: 
  Country: None (occurrence: None)
  Receive Date: 20081121
  Receipt Date: 20081114
  Transmission Date: 20090506
  Serious: Yes (Other)
  Sender: FDA-Public Use
  Company Number: US-JNJFOC-20081102790

PATIENT
  Age: 53 Year
  Sex: Female
  Weight: 83.92 kg

DRUGS (3)
  1. MOTRIN IB [Suspect]
     Indication: PLANTAR FASCIITIS
     Route: 048
  2. MOTRIN IB [Suspect]
     Indication: ARTHRITIS
     Route: 048
  3. MOTRIN IB [Suspect]
     Indication: ARTHRALGIA
     Dosage: 400 MG-600 MG 1-2 TIMES A DAY
     Route: 048

REACTIONS (3)
  - DEPENDENCE [None]
  - DRUG WITHDRAWAL SYNDROME [None]
  - INCORRECT DRUG ADMINISTRATION DURATION [None]
